FAERS Safety Report 5291290-4 (Version None)
Quarter: 2007Q2

REPORT INFORMATION
  Report Type: 
  Country: None (occurrence: None)
  Receive Date: 20070409
  Receipt Date: 20070324
  Transmission Date: 20071010
  Serious: Yes (Other)
  Sender: FDA-Public Use
  Company Number: US-PFIZER INC-2007024958

PATIENT
  Sex: Female
  Weight: 45.4 kg

DRUGS (4)
  1. LYRICA [Suspect]
     Indication: NEURALGIA
     Dates: start: 20070130, end: 20070201
  2. ALL OTHER THERAPEUTIC PRODUCTS [Concomitant]
  3. TRAMADOL HCL [Concomitant]
  4. ELAVIL [Concomitant]

REACTIONS (5)
  - ADVERSE DRUG REACTION [None]
  - PAIN [None]
  - PRURITUS [None]
  - RASH ERYTHEMATOUS [None]
  - SKIN INJURY [None]
